FAERS Safety Report 5525790-6 (Version None)
Quarter: 2007Q4

REPORT INFORMATION
  Report Type: 
  Country: None (occurrence: None)
  Receive Date: 20071126
  Receipt Date: 20071119
  Transmission Date: 20080405
  Serious: Yes (Other)
  Sender: FDA-Public Use
  Company Number: PHBS2007JP17811

PATIENT
  Age: 54 Year
  Sex: Female

DRUGS (8)
  1. DIOVAN [Suspect]
     Indication: HYPERTENSION
     Dosage: 80 MG/DAY
     Route: 048
     Dates: start: 20070711, end: 20071024
  2. SELBEX [Concomitant]
     Dosage: 100 MG, UNK
     Route: 048
     Dates: start: 20070711
  3. LOXONIN [Concomitant]
     Dosage: 120 MG, UNK
     Route: 048
     Dates: start: 20070711
  4. CINAL [Concomitant]
     Dosage: 2 G, UNK
     Route: 048
     Dates: start: 20070711
  5. EVOXAC [Concomitant]
     Dosage: 30 MG, UNK
     Dates: start: 20070711
  6. TERRA-CORTRIL [Concomitant]
     Dates: start: 20070725
  7. AMLODIN [Concomitant]
     Dates: start: 20071025, end: 20071110
  8. ADALAT [Concomitant]
     Dates: start: 20071111

REACTIONS (3)
  - CHEILITIS [None]
  - LIP OEDEMA [None]
  - MASS [None]
